FAERS Safety Report 9406312 (Version 1)
Quarter: 2013Q3

REPORT INFORMATION
  Report Type: Spontaneous
  Country: US (occurrence: US)
  Receive Date: 20130717
  Receipt Date: 20130717
  Transmission Date: 20140515
  Serious: No
  Sender: FDA-Public Use
  Company Number: US-009507513-1307USA004949

PATIENT
  Age: 64 Year
  Sex: Male

DRUGS (4)
  1. VICTRELIS [Suspect]
     Indication: HEPATITIS C
     Dosage: 800 MG, Q8H
     Route: 048
     Dates: start: 20130128
  2. PEGASYS [Suspect]
  3. RIBASPHERE [Suspect]
  4. TERAZOSIN HYDROCHLORIDE [Concomitant]

REACTIONS (3)
  - Thyroid function test abnormal [Unknown]
  - Visual impairment [Unknown]
  - Fatigue [Unknown]
